FAERS Safety Report 22969297 (Version 3)
Quarter: 2023Q4

REPORT INFORMATION
  Report Type: Spontaneous
  Country: BR (occurrence: BR)
  Receive Date: 20230922
  Receipt Date: 20231013
  Transmission Date: 20240110
  Serious: Yes (Life-Threatening, Hospitalization)
  Sender: FDA-Public Use
  Company Number: BR-JNJFOC-20230935502

PATIENT
  Sex: Male

DRUGS (6)
  1. HALOPERIDOL DECANOATE [Suspect]
     Active Substance: HALOPERIDOL DECANOATE
     Indication: Schizophrenia
     Dosage: 50 MG/ML
     Route: 030
  2. HALDOL [Suspect]
     Active Substance: HALOPERIDOL
     Indication: Schizophrenia
     Route: 048
  3. RISPERDAL [Suspect]
     Active Substance: RISPERIDONE
     Indication: Schizophrenia
     Route: 048
  4. THIORIDAZINE HYDROCHLORIDE [Suspect]
     Active Substance: THIORIDAZINE HYDROCHLORIDE
     Indication: Schizophrenia
     Route: 065
  5. ZUCLOPENTHIXOL ACETATE [Suspect]
     Active Substance: ZUCLOPENTHIXOL ACETATE
     Indication: Schizophrenia
     Route: 065
  6. OLANZAPINE [Suspect]
     Active Substance: OLANZAPINE
     Indication: Schizophrenia
     Route: 065

REACTIONS (6)
  - Suicide attempt [Unknown]
  - Cognitive disorder [Unknown]
  - Schizophrenia [Recovering/Resolving]
  - Treatment noncompliance [Unknown]
  - Physical assault [Unknown]
  - Drug ineffective [Unknown]
